FAERS Safety Report 6977997-9 (Version None)
Quarter: 2010Q3

REPORT INFORMATION
  Report Type: 
  Country: None (occurrence: None)
  Receive Date: 20100913
  Receipt Date: 20100901
  Transmission Date: 20110219
  Serious: Yes (Disabling, Other)
  Sender: FDA-Public Use
  Company Number: US-PFIZER INC-2010080243

PATIENT
  Sex: Female

DRUGS (6)
  1. CHANTIX [Suspect]
     Indication: SMOKING CESSATION THERAPY
     Dosage: UNK
     Dates: start: 20070101, end: 20070101
  2. CREON [Concomitant]
     Indication: PANCREATIC DISORDER
     Dosage: UNK
     Dates: start: 19910101, end: 20100601
  3. VALIUM [Concomitant]
     Indication: DEPRESSION
     Dosage: UNK
     Dates: start: 19910101
  4. XANAX [Concomitant]
     Indication: ANXIETY
     Dosage: UNK
     Dates: start: 19980101, end: 20100201
  5. HYDROCODONE [Concomitant]
     Indication: PAIN
     Dosage: UNK
     Dates: start: 19970101, end: 20100501
  6. PROMETHAZINE [Concomitant]
     Indication: NAUSEA
     Dosage: UNK
     Dates: start: 19910101, end: 20100601

REACTIONS (8)
  - AGGRESSION [None]
  - ANXIETY [None]
  - CONFUSIONAL STATE [None]
  - DEPRESSION [None]
  - MENTAL DISORDER [None]
  - MOOD SWINGS [None]
  - NIGHTMARE [None]
  - SUICIDAL IDEATION [None]
